FAERS Safety Report 20013891 (Version 7)
Quarter: 2022Q4

REPORT INFORMATION
  Report Type: Report from Study
  Country: FR (occurrence: FR)
  Receive Date: 20211029
  Receipt Date: 20221206
  Transmission Date: 20230113
  Serious: Yes (Other)
  Sender: FDA-Public Use
  Company Number: FR-002147023-NVSC2021FR228463

PATIENT
  Age: 78 Year
  Sex: Male
  Weight: 92 kg

DRUGS (11)
  1. BEVACIZUMAB [Suspect]
     Active Substance: BEVACIZUMAB
     Indication: Non-small cell lung cancer
     Dosage: UNK
     Route: 065
     Dates: end: 202109
  2. CAPMATINIB [Suspect]
     Active Substance: CAPMATINIB
     Indication: Non-small cell lung cancer
     Dosage: 800 MILLIGRAM, QD
     Route: 048
  3. CAPMATINIB [Suspect]
     Active Substance: CAPMATINIB
     Dosage: 200 MILLIGRAM
     Route: 048
     Dates: start: 20210403, end: 20211208
  4. CAPMATINIB [Suspect]
     Active Substance: CAPMATINIB
     Dosage: 600 MILLIGRAM
     Route: 048
     Dates: start: 202011
  5. CAPMATINIB [Suspect]
     Active Substance: CAPMATINIB
     Dosage: 400 MILLIGRAM, QD
     Route: 048
     Dates: start: 20210225
  6. CAPMATINIB [Suspect]
     Active Substance: CAPMATINIB
     Dosage: 200 MILLIGRAM, QD
     Route: 048
     Dates: start: 20210115
  7. CAPMATINIB [Suspect]
     Active Substance: CAPMATINIB
     Dosage: 400 MILLIGRAM, BID
     Route: 048
     Dates: start: 20210930
  8. CAPMATINIB [Suspect]
     Active Substance: CAPMATINIB
     Dosage: 400 MILLIGRAM, BID
     Route: 048
     Dates: start: 20211030
  9. PACLITAXEL [Suspect]
     Active Substance: PACLITAXEL
     Indication: Non-small cell lung cancer
     Dosage: UNK
     Route: 065
     Dates: end: 202109
  10. ACETAMINOPHEN [Concomitant]
     Active Substance: ACETAMINOPHEN
     Indication: Product used for unknown indication
     Dosage: UNK
     Route: 065
  11. SKENAN [Concomitant]
     Active Substance: MORPHINE SULFATE
     Indication: Product used for unknown indication
     Dosage: UNK
     Route: 065

REACTIONS (9)
  - Hepatic cytolysis [Recovered/Resolved]
  - Malignant neoplasm progression [Unknown]
  - Non-small cell lung cancer [Unknown]
  - Oedema peripheral [Recovered/Resolved]
  - Drug intolerance [Unknown]
  - Gynaecomastia [Unknown]
  - Oedema peripheral [Unknown]
  - Anaemia [Unknown]
  - Blood sodium decreased [Unknown]

NARRATIVE: CASE EVENT DATE: 20201211
